FAERS Safety Report 8624121-2 (Version None)
Quarter: 2012Q3

REPORT INFORMATION
  Report Type: 
  Country: None (occurrence: None)
  Receive Date: 20120827
  Receipt Date: 20120816
  Transmission Date: 20120928
  Serious: Yes (Other)
  Sender: FDA-Public Use
  Company Number: US-ASTRAZENECA-2012SE57861

PATIENT
  Age: 60 Year
  Sex: Female

DRUGS (2)
  1. CRESTOR [Suspect]
     Route: 048
  2. TRILIPIX [Concomitant]

REACTIONS (7)
  - RHABDOMYOLYSIS [None]
  - HYPOGLYCAEMIA [None]
  - MYALGIA [None]
  - BLOOD POTASSIUM DECREASED [None]
  - DIABETES MELLITUS [None]
  - RENAL FAILURE CHRONIC [None]
  - FATIGUE [None]
